FAERS Safety Report 11738116 (Version 2)
Quarter: 2016Q1

REPORT INFORMATION
  Report Type: Spontaneous
  Country: US (occurrence: US)
  Receive Date: 20151113
  Receipt Date: 20160201
  Transmission Date: 20160525
  Serious: Yes (Other)
  Sender: FDA-Public Use
  Company Number: US-PFIZER INC-2015372533

PATIENT
  Sex: Female
  Weight: 2.25 kg

DRUGS (3)
  1. GABAPENTIN. [Suspect]
     Active Substance: GABAPENTIN
     Dosage: 600 MG, 3X/DAY
     Route: 064
  2. OXYBUTYNIN [Concomitant]
     Active Substance: OXYBUTYNIN
     Dosage: 10 MG, DAILY
     Route: 064
  3. BACLOFEN. [Concomitant]
     Active Substance: BACLOFEN
     Dosage: 30 MG, 4X/DAY
     Route: 064

REACTIONS (6)
  - Drug withdrawal syndrome neonatal [Recovered/Resolved]
  - Feeling jittery [Recovered/Resolved]
  - Diarrhoea [Recovered/Resolved]
  - Irritability [Recovered/Resolved]
  - Maternal exposure during pregnancy [Recovered/Resolved]
  - Sneezing [Recovered/Resolved]
